FAERS Safety Report 10884158 (Version 1)
Quarter: 2015Q1

REPORT INFORMATION
  Report Type: Spontaneous
  Country: US (occurrence: US)
  Receive Date: 20150304
  Receipt Date: 20150304
  Transmission Date: 20150721
  Serious: No
  Sender: FDA-Public Use
  Company Number: US-BIOGENIDEC-2015BI018639

PATIENT
  Age: 60 Year
  Sex: Female

DRUGS (1)
  1. TECFIDERA [Suspect]
     Active Substance: DIMETHYL FUMARATE
     Indication: MULTIPLE SCLEROSIS
     Route: 048
     Dates: start: 20141001

REACTIONS (8)
  - Gait disturbance [Not Recovered/Not Resolved]
  - Muscle spasms [Recovered/Resolved with Sequelae]
  - Weight increased [Not Recovered/Not Resolved]
  - Cough [Recovered/Resolved with Sequelae]
  - Fatigue [Not Recovered/Not Resolved]
  - Headache [Not Recovered/Not Resolved]
  - Hypoaesthesia [Not Recovered/Not Resolved]
  - Choking [Recovered/Resolved]

NARRATIVE: CASE EVENT DATE: 201410
